FAERS Safety Report 25449477 (Version 1)
Quarter: 2025Q2

REPORT INFORMATION
  Report Type: Spontaneous
  Country: CN (occurrence: CN)
  Receive Date: 20250618
  Receipt Date: 20250618
  Transmission Date: 20250716
  Serious: Yes (Life-Threatening)
  Sender: EMD SERONO INC
  Company Number: CN-Merck Healthcare KGaA-2025030128

PATIENT
  Age: 18 Day
  Sex: Male
  Weight: 1 kg

DRUGS (1)
  1. EUTHYROX [Suspect]
     Active Substance: LEVOTHYROXINE SODIUM
     Indication: Hypothyroidism
     Dates: start: 20250525, end: 20250602

REACTIONS (1)
  - Foetal heart rate increased [Recovering/Resolving]

NARRATIVE: CASE EVENT DATE: 20250529
